FAERS Safety Report 11620911 (Version 2)
Quarter: 2015Q4

REPORT INFORMATION
  Report Type: Spontaneous
  Country: ES (occurrence: ES)
  Receive Date: 20151012
  Receipt Date: 20151015
  Transmission Date: 20160304
  Serious: Yes (Life-Threatening, Hospitalization)
  Sender: FDA-Public Use
  Company Number: ES-SA-2015SA154118

PATIENT
  Age: 53 Year
  Sex: Male

DRUGS (4)
  1. PROPRANOLOL [Suspect]
     Active Substance: PROPRANOLOL\PROPRANOLOL HYDROCHLORIDE
     Indication: LIVER DISORDER
     Dosage: 10 MG CADA 12 HORAS
     Route: 048
     Dates: start: 20150825, end: 20150913
  2. SEGURIL [Suspect]
     Active Substance: FUROSEMIDE
     Indication: LIVER DISORDER
     Dosage: 40 MG 1 VEZ AL DIA
     Route: 048
     Dates: start: 20150901, end: 20150905
  3. ALDACTONE [Suspect]
     Active Substance: SPIRONOLACTONE
     Indication: LIVER DISORDER
     Dosage: 50 MG, 1 VEZ AL DIA
     Route: 048
     Dates: start: 20150901, end: 20150907
  4. PANTOPRAZOL [Suspect]
     Active Substance: PANTOPRAZOLE SODIUM
     Indication: DUODENITIS
     Dosage: 20 MG AL DIA
     Route: 048
     Dates: start: 20150904

REACTIONS (2)
  - Hepatitis cholestatic [Not Recovered/Not Resolved]
  - Hyperbilirubinaemia [Not Recovered/Not Resolved]

NARRATIVE: CASE EVENT DATE: 20150905
